FAERS Safety Report 10673748 (Version 1)
Quarter: 2014Q4

REPORT INFORMATION
  Report Type: Spontaneous
  Country: US (occurrence: US)
  Receive Date: 20141224
  Receipt Date: 20141224
  Transmission Date: 20150529
  Serious: Yes (Other)
  Sender: FDA-Public Use
  Company Number: US-CIPLA LTD.-2014US02681

PATIENT

DRUGS (2)
  1. VISMODEGIB [Suspect]
     Active Substance: VISMODEGIB
     Indication: PANCREATIC CARCINOMA METASTATIC
     Dosage: 150 MG DAILY AS MONOTHERAPY FOR THE FIRST 4 WEEK CYCLE
     Route: 048
  2. GEMCITABINE [Suspect]
     Active Substance: GEMCITABINE\GEMCITABINE HYDROCHLORIDE
     Indication: PANCREATIC CARCINOMA METASTATIC
     Dosage: 1,000 MG/M2 OVER 30 MINUTES ON DAYS 1, 8 +15 OF EACH SUBSEQUENT 4 WEEK CYCLE BEGINNING WITH CYCLE 2
     Route: 042

REACTIONS (1)
  - Large intestine perforation [Unknown]
